FAERS Safety Report 5649056-9 (Version None)
Quarter: 2008Q1

REPORT INFORMATION
  Report Type: 
  Country: None (occurrence: None)
  Receive Date: 20080229
  Receipt Date: 20080213
  Transmission Date: 20080703
  Serious: Yes (Other)
  Sender: FDA-Public Use
  Company Number: PAR_02114_2008

PATIENT
  Age: 17 Year
  Sex: Male

DRUGS (1)
  1. DOXYCYCLINE [Suspect]
     Indication: ACNE
     Dosage: (100 MG BID)

REACTIONS (1)
  - BENIGN INTRACRANIAL HYPERTENSION [None]
